FAERS Safety Report 6236371-3 (Version None)
Quarter: 2009Q2

REPORT INFORMATION
  Report Type: 
  Country: None (occurrence: None)
  Receive Date: 20090619
  Receipt Date: 20090609
  Transmission Date: 20091009
  Serious: Yes (Other)
  Sender: FDA-Public Use
  Company Number: US-AMGEN-US350865

PATIENT
  Sex: Male

DRUGS (8)
  1. NEULASTA [Suspect]
     Indication: CHEMOTHERAPY
     Route: 058
     Dates: start: 20090605
  2. COMPAZINE [Concomitant]
     Dates: start: 20090605
  3. EMEND [Concomitant]
     Route: 042
     Dates: start: 20090602
  4. EMEND [Concomitant]
     Route: 048
     Dates: start: 20090603, end: 20090604
  5. ETOPOSIDE [Concomitant]
  6. CISPLATIN [Concomitant]
  7. BLEOMYCIN SULFATE [Concomitant]
  8. HEPARIN [Concomitant]

REACTIONS (6)
  - ANAPHYLACTIC REACTION [None]
  - DYSPNOEA [None]
  - FEELING ABNORMAL [None]
  - FEELING HOT [None]
  - FLUSHING [None]
  - PHARYNGEAL OEDEMA [None]
